FAERS Safety Report 16890652 (Version 1)
Quarter: 2019Q4

REPORT INFORMATION
  Report Type: Spontaneous
  Country: US (occurrence: US)
  Receive Date: 20191005
  Receipt Date: 20191005
  Transmission Date: 20200122
  Serious: No
  Sender: FDA-Public Use
  Company Number: None

PATIENT
  Age: 29 Year
  Sex: Female
  Weight: 81 kg

DRUGS (18)
  1. NUVARING [Concomitant]
     Active Substance: ETHINYL ESTRADIOL\ETONOGESTREL
  2. SINGULAIR [Concomitant]
     Active Substance: MONTELUKAST SODIUM
  3. QUETIAPINE. [Concomitant]
     Active Substance: QUETIAPINE
  4. BENZTROPINE. [Concomitant]
     Active Substance: BENZTROPINE
  5. NORTRIPTYLINE [Concomitant]
     Active Substance: NORTRIPTYLINE
  6. IBUPROFEN. [Concomitant]
     Active Substance: IBUPROFEN
  7. CLARITIN [Concomitant]
     Active Substance: LORATADINE
  8. PRAZOSIN. [Concomitant]
     Active Substance: PRAZOSIN
  9. XANAX [Concomitant]
     Active Substance: ALPRAZOLAM
  10. ANAFRANIL [Suspect]
     Active Substance: CLOMIPRAMINE HYDROCHLORIDE
     Indication: POST-TRAUMATIC STRESS DISORDER
     Dosage: ?          QUANTITY:1 CAPSULE(S);?
     Route: 048
     Dates: start: 20181122, end: 20190915
  11. THC/CBD [Concomitant]
  12. ANAFRANIL [Suspect]
     Active Substance: CLOMIPRAMINE HYDROCHLORIDE
     Indication: OBSESSIVE-COMPULSIVE DISORDER
     Dosage: ?          QUANTITY:1 CAPSULE(S);?
     Route: 048
     Dates: start: 20181122, end: 20190915
  13. PROLANOLOL [Concomitant]
  14. RANITIDINE. [Concomitant]
     Active Substance: RANITIDINE
  15. MARIJUANA FLOWER [Concomitant]
  16. ALBUTEROL. [Concomitant]
     Active Substance: ALBUTEROL
  17. LITHIUM. [Concomitant]
     Active Substance: LITHIUM
  18. ANAFRANIL [Concomitant]
     Active Substance: CLOMIPRAMINE HYDROCHLORIDE

REACTIONS (1)
  - Hyperhidrosis [None]

NARRATIVE: CASE EVENT DATE: 20190710
